FAERS Safety Report 10863833 (Version 3)
Quarter: 2015Q2

REPORT INFORMATION
  Report Type: Spontaneous
  Country: US (occurrence: US)
  Receive Date: 20150224
  Receipt Date: 20150602
  Transmission Date: 20150821
  Serious: Yes (Hospitalization, Other)
  Sender: FDA-Public Use
  Company Number: US-PFIZER INC-2015064761

PATIENT
  Age: 42 Year
  Sex: Female

DRUGS (2)
  1. PROAMATINE [Concomitant]
     Active Substance: MIDODRINE HYDROCHLORIDE
     Indication: PROPHYLAXIS
     Dosage: UNK
  2. HYDROCORTISONE. [Suspect]
     Active Substance: HYDROCORTISONE
     Indication: ADDISON^S DISEASE
     Dosage: 40 MG, 3X/DAY
     Dates: start: 20141101

REACTIONS (12)
  - Atrial fibrillation [Unknown]
  - Tachycardia [Recovered/Resolved]
  - Fatigue [Recovered/Resolved]
  - Cellulitis [Unknown]
  - Fibromyalgia [Unknown]
  - Salt craving [Recovered/Resolved]
  - Dizziness [Recovered/Resolved]
  - Thirst [Recovered/Resolved]
  - Malaise [Recovered/Resolved]
  - Condition aggravated [Unknown]
  - Pain [Recovered/Resolved]
  - Supraventricular tachycardia [Recovered/Resolved]

NARRATIVE: CASE EVENT DATE: 201501
